FAERS Safety Report 5389616-6 (Version None)
Quarter: 2007Q3

REPORT INFORMATION
  Report Type: 
  Country: None (occurrence: None)
  Receive Date: 20070713
  Receipt Date: 20070706
  Transmission Date: 20080115
  Serious: Yes (Death)
  Sender: FDA-Public Use
  Company Number: 2007US001581

PATIENT
  Sex: Female

DRUGS (1)
  1. PROGRAF [Suspect]
     Indication: LIVER TRANSPLANT REJECTION
     Dosage: 4 MG, BID, ORAL
     Route: 048

REACTIONS (2)
  - BILE DUCT STENOSIS [None]
  - HEPATITIS C [None]
